FAERS Safety Report 10084975 (Version 4)
Quarter: 2014Q2

REPORT INFORMATION
  Report Type: Report from Study
  Country: JP (occurrence: JP)
  Receive Date: 20140417
  Receipt Date: 20140522
  Transmission Date: 20141212
  Serious: Yes (Hospitalization)
  Sender: FDA-Public Use
  Company Number: JP-ROCHE-1377397

PATIENT
  Age: 66 Year
  Sex: Male
  Weight: 68 kg

DRUGS (27)
  1. TRASTUZUMAB [Suspect]
     Indication: HER-2 POSITIVE GASTRIC CANCER
     Dosage: LOADING DOSE
     Route: 042
     Dates: start: 20140124, end: 20140124
  2. TRASTUZUMAB [Suspect]
     Dosage: MAINTENANCE DOSE?MOST RECENT DOSE PRIOR TO AE ON : 14/MAR/2014
     Route: 042
  3. CAPECITABINE [Suspect]
     Indication: HER-2 POSITIVE GASTRIC CANCER
     Dosage: MOST RECENT DOSE PRIOR TO AE : 28/MAR/2014
     Route: 048
     Dates: start: 20140124
  4. CAPECITABINE [Suspect]
     Dosage: DOSE REDUCED
     Route: 048
  5. CISPLATIN [Suspect]
     Indication: HER-2 POSITIVE GASTRIC CANCER
     Dosage: LAST DOSE PRIOR TO EVENT: 14/MAR/2014
     Route: 042
     Dates: start: 20140124
  6. PARIET [Concomitant]
     Indication: GASTROOESOPHAGEAL REFLUX DISEASE
     Route: 048
     Dates: start: 20131225
  7. HYALEIN [Concomitant]
     Indication: DRY EYE
     Route: 047
     Dates: start: 1993
  8. PROEMEND [Concomitant]
     Indication: NAUSEA
     Route: 042
     Dates: start: 20140124
  9. DECADRON [Concomitant]
     Indication: NAUSEA
     Route: 042
     Dates: start: 20140124
  10. DECADRON [Concomitant]
     Indication: NAUSEA
     Route: 042
     Dates: start: 20140125
  11. MANNITOL 20% [Concomitant]
     Dosage: FOR HYDRATION
     Route: 042
     Dates: start: 20140124
  12. ALOXI [Concomitant]
     Indication: NAUSEA
     Route: 042
     Dates: start: 20140124
  13. KERATINAMIN [Concomitant]
     Indication: DRY SKIN
     Route: 065
     Dates: start: 20140127
  14. KERATINAMIN [Concomitant]
     Indication: PALMAR-PLANTAR ERYTHRODYSAESTHESIA SYNDROME
  15. KENALOG (JAPAN) [Concomitant]
     Indication: STOMATITIS
     Route: 065
     Dates: start: 20140304, end: 20140407
  16. OLMETEC [Concomitant]
     Indication: HYPERTENSION
     Route: 048
     Dates: start: 20140315, end: 20140325
  17. OLMETEC [Concomitant]
     Indication: HYPERTENSION
     Dosage: SELECT IF ONGOING=NO
     Route: 065
     Dates: start: 20140326, end: 20140331
  18. HACHIAZULE [Concomitant]
     Indication: STOMATITIS
     Route: 065
     Dates: start: 20140401
  19. XYLOCAINE [Concomitant]
     Indication: STOMATITIS
     Route: 065
     Dates: start: 20140401, end: 20140416
  20. ENSURE [Concomitant]
     Indication: DECREASED APPETITE
     Route: 048
     Dates: start: 20140401, end: 20140402
  21. BIO-THREE [Concomitant]
     Indication: DIARRHOEA
     Route: 048
     Dates: start: 20140329, end: 20140329
  22. DEXALTIN [Concomitant]
     Indication: STOMATITIS
     Route: 061
     Dates: start: 20140407, end: 20140428
  23. CRAVIT [Concomitant]
     Indication: CONJUNCTIVITIS
     Route: 047
     Dates: start: 20140404, end: 20140409
  24. CALONAL [Concomitant]
     Indication: PYREXIA
     Route: 048
     Dates: start: 20140406, end: 20140406
  25. LASIX [Concomitant]
     Indication: OEDEMA
     Route: 042
     Dates: start: 20140315, end: 20140317
  26. PERTUZUMAB [Suspect]
     Indication: HER-2 POSITIVE GASTRIC CANCER
     Dosage: LOADING DOSE
     Route: 042
     Dates: start: 20140124
  27. PERTUZUMAB [Suspect]
     Dosage: MOST RECENT DOSE PRIOR TO AE ON : 14/MAR/2014
     Route: 042

REACTIONS (1)
  - Dehydration [Recovered/Resolved]
